FAERS Safety Report 4649982-3 (Version None)
Quarter: 2005Q2

REPORT INFORMATION
  Report Type: 
  Country: None (occurrence: None)
  Receive Date: 20050502
  Receipt Date: 20050419
  Transmission Date: 20051028
  Serious: Yes (Hospitalization)
  Sender: FDA-Public Use
  Company Number: PHHO2005TW06602

PATIENT
  Age: 61 Year
  Sex: Male
  Weight: 62 kg

DRUGS (7)
  1. EXELON [Suspect]
     Indication: DEMENTIA ALZHEIMER'S TYPE
     Dosage: DOSE LEVEL 4
     Route: 062
     Dates: start: 20050323, end: 20050402
  2. AMLODIPINE [Concomitant]
  3. ALLOPURINOL [Concomitant]
  4. LISINOPRIL [Concomitant]
  5. TICLOPIDINE HCL [Concomitant]
  6. MAGNESIUM OXIDE [Concomitant]
  7. DISOTHIAZIDE [Concomitant]
     Indication: HYPERTENSION

REACTIONS (3)
  - LIPASE INCREASED [None]
  - NAUSEA [None]
  - VOMITING [None]
